FAERS Safety Report 15684111 (Version 4)
Quarter: 2019Q1

REPORT INFORMATION
  Report Type: Spontaneous
  Country: IE (occurrence: IE)
  Receive Date: 20181204
  Receipt Date: 20190118
  Transmission Date: 20190417
  Serious: Yes (Disabling, Other)
  Sender: FDA-Public Use
  Company Number: IE-009507513-1811IRL001096

PATIENT
  Age: 23 Year
  Sex: Female

DRUGS (2)
  1. IMPLANON [Suspect]
     Active Substance: ETONOGESTREL
     Dosage: 1 DOSAGE FORM
     Route: 059
     Dates: start: 20181025
  2. IMPLANON [Suspect]
     Active Substance: ETONOGESTREL
     Dosage: STRENGTH:68 MG (1 DOSAGE FORM), ONCE, LEFT ARM
     Route: 058
     Dates: start: 20180913, end: 20181025

REACTIONS (12)
  - Pain in extremity [Recovered/Resolved]
  - Product tampering [Unknown]
  - Device expulsion [Recovered/Resolved]
  - Device deployment issue [Recovered/Resolved]
  - Product contamination [Unknown]
  - Peripheral swelling [Recovered/Resolved]
  - Panic reaction [Unknown]
  - Fear [Unknown]
  - Implant site infection [Recovered/Resolved]
  - Implant site pain [Recovered/Resolved]
  - Asthenia [Unknown]
  - Bloody discharge [Recovered/Resolved]

NARRATIVE: CASE EVENT DATE: 201809
